FAERS Safety Report 6280037-0 (Version None)
Quarter: 2009Q3

REPORT INFORMATION
  Report Type: 
  Country: None (occurrence: None)
  Receive Date: 20090723
  Receipt Date: 20090717
  Transmission Date: 20100115
  Serious: Yes (Life-Threatening, Hospitalization, Other)
  Sender: FDA-Public Use
  Company Number: US-CELGENEUS-163-21880-09050341

PATIENT
  Sex: Female

DRUGS (3)
  1. REVLIMID [Suspect]
     Indication: MULTIPLE MYELOMA
     Route: 048
     Dates: start: 20090309, end: 20090427
  2. LEVOTHYROXINE SODIUM [Concomitant]
     Indication: HYPOTHYROIDISM
     Route: 065
  3. ESTRATEST [Concomitant]
     Route: 065

REACTIONS (4)
  - ACUTE RESPIRATORY FAILURE [None]
  - CARDIOMYOPATHY [None]
  - MULTIPLE MYELOMA [None]
  - RENAL FAILURE ACUTE [None]
